FAERS Safety Report 8161804-5 (Version None)
Quarter: 2012Q1

REPORT INFORMATION
  Report Type: 
  Country: None (occurrence: None)
  Receive Date: 20120224
  Receipt Date: 20120210
  Transmission Date: 20120608
  Serious: Yes (Other)
  Sender: FDA-Public Use
  Company Number: FR-MYLANLABS-2012S1003347

PATIENT
  Age: 38 Year
  Sex: Female

DRUGS (1)
  1. KETOPROFEN [Suspect]
     Indication: MIGRAINE
     Route: 065

REACTIONS (3)
  - ANAPHYLACTIC REACTION [None]
  - FOOD ALLERGY [None]
  - SENSITISATION [None]
